FAERS Safety Report 13402213 (Version 4)
Quarter: 2017Q2

REPORT INFORMATION
  Report Type: Report from Study
  Country: US (occurrence: US)
  Receive Date: 20170404
  Receipt Date: 20170413
  Transmission Date: 20170830
  Serious: No
  Sender: FDA-Public Use
  Company Number: US-JNJFOC-20170334632

PATIENT
  Age: 58 Year
  Sex: Female
  Weight: 85.73 kg

DRUGS (1)
  1. USTEKINUMAB [Suspect]
     Active Substance: USTEKINUMAB
     Indication: PSORIASIS
     Route: 058
     Dates: start: 20140527

REACTIONS (1)
  - Endometrial cancer stage I [Recovered/Resolved]

NARRATIVE: CASE EVENT DATE: 20161029
